FAERS Safety Report 8549078-4 (Version None)
Quarter: 2012Q3

REPORT INFORMATION
  Report Type: 
  Country: None (occurrence: None)
  Receive Date: 20120730
  Receipt Date: 20120724
  Transmission Date: 20120928
  Serious: Yes (Other)
  Sender: FDA-Public Use
  Company Number: US-PFIZER INC-2012179285

PATIENT
  Sex: Female
  Weight: 104 kg

DRUGS (5)
  1. EFFEXOR XR [Suspect]
     Indication: ANXIETY
     Dosage: 75 MG, 3X/DAY
     Dates: end: 20120601
  2. VERELAN PM [Concomitant]
     Indication: CARDIAC DISORDER
     Dosage: 200 MG, DAILY
  3. EFFEXOR XR [Suspect]
     Indication: DEPRESSION
  4. OPANA [Concomitant]
     Indication: BACK PAIN
     Dosage: 20 MG, 3X/DAY
  5. OPANA [Concomitant]
     Indication: INTERVERTEBRAL DISC DEGENERATION

REACTIONS (4)
  - EMOTIONAL DISORDER [None]
  - DEPRESSION [None]
  - ANXIETY [None]
  - DRUG INEFFECTIVE [None]
